FAERS Safety Report 25956198 (Version 1)
Quarter: 2025Q4

REPORT INFORMATION
  Report Type: Spontaneous
  Country: US (occurrence: US)
  Receive Date: 20251024
  Receipt Date: 20251024
  Transmission Date: 20260117
  Serious: Yes (Death)
  Sender: MYLAN
  Company Number: US-MYLANLABS-2025M1089979

PATIENT
  Age: 72 Year
  Sex: Female

DRUGS (7)
  1. PACLITAXEL [Suspect]
     Active Substance: PACLITAXEL
     Indication: Endometrial adenocarcinoma
     Dosage: UNK, CYCLE (NEOADJUVANT CHEMOTHERAPY; 3 CYCLES)
  2. PACLITAXEL [Suspect]
     Active Substance: PACLITAXEL
     Dosage: UNK, CYCLE (ADJUVANT CHEMOTHERAPY; 3 CYCLES)
  3. PEMBROLIZUMAB [Suspect]
     Active Substance: PEMBROLIZUMAB
     Indication: Endometrial adenocarcinoma
     Dosage: UNK, CYCLE (NEOADJUVANT CHEMOTHERAPY; 3 CYCLES)
  4. PEMBROLIZUMAB [Suspect]
     Active Substance: PEMBROLIZUMAB
     Dosage: UNK, CYCLE (ADJUVANT CHEMOTHERAPY; 3 CYCLES)
  5. CARBOPLATIN [Suspect]
     Active Substance: CARBOPLATIN
     Indication: Endometrial adenocarcinoma
     Dosage: UNK, CYCLE (NEOADJUVANT CHEMOTHERAPY; 3 CYCLES)
  6. CARBOPLATIN [Suspect]
     Active Substance: CARBOPLATIN
     Dosage: UNK, CYCLE (ADJUVANT CHEMOTHERAPY; 3 CYCLES)
  7. METHYLPREDNISOLONE [Concomitant]
     Active Substance: METHYLPREDNISOLONE
     Indication: Enanthema
     Dosage: 40 MILLIGRAM, QD (TAPERED BY 10 MG PER WEEK)

REACTIONS (1)
  - Drug ineffective [Fatal]
